FAERS Safety Report 8496757-3 (Version None)
Quarter: 2012Q3

REPORT INFORMATION
  Report Type: 
  Country: None (occurrence: None)
  Receive Date: 20120709
  Receipt Date: 20120628
  Transmission Date: 20120928
  Serious: Yes (Hospitalization)
  Sender: FDA-Public Use
  Company Number: US-ROCHE-1047510

PATIENT
  Age: 46 Year
  Sex: Male

DRUGS (23)
  1. CYCLOPHOSPHAMIDE [Suspect]
     Indication: NON-HODGKIN'S LYMPHOMA
     Route: 042
     Dates: start: 20120217, end: 20120222
  2. DOXORUBICIN HCL [Suspect]
     Indication: NON-HODGKIN'S LYMPHOMA
     Route: 042
     Dates: start: 20120217, end: 20120222
  3. NEULASTA [Suspect]
     Route: 058
  4. VALTREX [Concomitant]
  5. OMEPRAZOLE [Concomitant]
  6. FLUCONAZOLE [Concomitant]
  7. DOXORUBICIN HCL [Suspect]
     Route: 042
  8. VINCRISTINE [Suspect]
     Route: 042
  9. NEULASTA [Suspect]
     Indication: NON-HODGKIN'S LYMPHOMA
     Route: 058
  10. MABTHERA [Suspect]
     Route: 042
     Dates: start: 20120502
  11. MABTHERA [Suspect]
     Indication: NON-HODGKIN'S LYMPHOMA
     Route: 042
     Dates: start: 20120217, end: 20120222
  12. VINCRISTINE [Suspect]
     Indication: NON-HODGKIN'S LYMPHOMA
     Route: 042
  13. MESNA [Suspect]
  14. CYCLOPHOSPHAMIDE [Suspect]
     Route: 042
  15. DEXAMETHASONE [Suspect]
     Route: 048
  16. MESNA [Suspect]
     Indication: NON-HODGKIN'S LYMPHOMA
  17. METOPROLOL [Concomitant]
  18. MORPHINE [Concomitant]
  19. CIPROFLOXACIN [Concomitant]
  20. MS CONTIN [Concomitant]
  21. DEXAMETHASONE [Suspect]
     Indication: NON-HODGKIN'S LYMPHOMA
     Route: 048
  22. ENOXAPARIN [Concomitant]
  23. COMPAZINE [Concomitant]

REACTIONS (2)
  - DEEP VEIN THROMBOSIS [None]
  - FEBRILE NEUTROPENIA [None]
